FAERS Safety Report 21620021 (Version 2)
Quarter: 2023Q1

REPORT INFORMATION
  Report Type: Spontaneous
  Country: US (occurrence: US)
  Receive Date: 20221121
  Receipt Date: 20230113
  Transmission Date: 20230417
  Serious: Yes (Other)
  Sender: FDA-Public Use
  Company Number: US-BRISTOL-MYERS SQUIBB COMPANY-2022-135343

PATIENT
  Age: 80 Year
  Sex: Male

DRUGS (1)
  1. CAMZYOS [Suspect]
     Active Substance: MAVACAMTEN
     Indication: Product used for unknown indication
     Route: 048
     Dates: start: 20220909

REACTIONS (4)
  - Fall [Unknown]
  - Basal cell carcinoma [Unknown]
  - Pericardial effusion [Unknown]
  - Constipation [Unknown]

NARRATIVE: CASE EVENT DATE: 20230110
